FAERS Safety Report 16788985 (Version 8)
Quarter: 2022Q2

REPORT INFORMATION
  Report Type: Report from Study
  Country: JP (occurrence: JP)
  Receive Date: 20190910
  Receipt Date: 20220621
  Transmission Date: 20220721
  Serious: Yes (Hospitalization, Other)
  Sender: FDA-Public Use
  Company Number: JP-GLAXOSMITHKLINE-JP2017JPN098293

PATIENT

DRUGS (35)
  1. DOLUTEGRAVIR [Suspect]
     Active Substance: DOLUTEGRAVIR
     Indication: HIV infection
     Dosage: 50 MG, 1D
     Route: 048
     Dates: start: 20160106, end: 20190716
  2. EPZICOM [Suspect]
     Active Substance: ABACAVIR SULFATE\LAMIVUDINE
     Indication: HIV infection
     Dosage: 1 DF, 1D
     Route: 048
     Dates: start: 20151211, end: 20190716
  3. AZITHROMYCIN DIHYDRATE [Suspect]
     Active Substance: AZITHROMYCIN DIHYDRATE
     Indication: Opportunistic infection prophylaxis
     Dosage: 1200 MG, QD
     Route: 065
     Dates: start: 20151209, end: 20151213
  4. AZITHROMYCIN DIHYDRATE [Suspect]
     Active Substance: AZITHROMYCIN DIHYDRATE
     Indication: Mycobacterium avium complex infection
     Dosage: 1200 MG, QD
     Route: 065
     Dates: start: 20151224, end: 20151224
  5. AZITHROMYCIN DIHYDRATE [Suspect]
     Active Substance: AZITHROMYCIN DIHYDRATE
     Dosage: 600 MG, QD
     Route: 065
     Dates: start: 20160119, end: 20200823
  6. MYCOBUTIN [Suspect]
     Active Substance: RIFABUTIN
     Indication: Mycobacterium avium complex infection
     Dosage: 300 MG, QD
     Route: 065
     Dates: start: 20160119, end: 20190625
  7. ETHAMBUTOL HYDROCHLORIDE [Suspect]
     Active Substance: ETHAMBUTOL HYDROCHLORIDE
     Indication: Mycobacterium avium complex infection
     Dosage: 1000 MG, QD
     Route: 065
     Dates: start: 20160119, end: 20190625
  8. ISENTRESS [Concomitant]
     Active Substance: RALTEGRAVIR POTASSIUM
     Indication: HIV infection
     Dosage: 800 MG, 1D
     Dates: start: 20151211, end: 20160105
  9. PENTAMIDINE [Concomitant]
     Active Substance: PENTAMIDINE
     Indication: Prophylaxis
     Dosage: 0.33 BOTTLE, ONCE IN 2 WEEKS
     Dates: start: 20151224, end: 20160331
  10. PENTAMIDINE [Concomitant]
     Active Substance: PENTAMIDINE
     Dosage: 0.33 BOTTLE, ONCE A MONTH
     Dates: start: 20160401, end: 20160511
  11. SULFAMETHOXAZOLE\TRIMETHOPRIM [Concomitant]
     Active Substance: SULFAMETHOXAZOLE\TRIMETHOPRIM
     Indication: Prophylaxis
     Dosage: 1 DF, QD
     Dates: start: 20160511, end: 20201007
  12. LAC-B GRANULAR POWDER N [Concomitant]
     Indication: Prophylaxis
     Dosage: UNK
     Dates: start: 20180110, end: 20180515
  13. LAC-B GRANULAR POWDER N [Concomitant]
     Dosage: UNK
     Dates: start: 20190424, end: 20191003
  14. LOPERAMIDE HYDROCHLORIDE CAPSULE [Concomitant]
     Indication: Prophylaxis
     Dosage: UNK
     Dates: start: 20170630, end: 20190716
  15. INFLUENZA VIRUS VACCINE [Concomitant]
     Active Substance: INFLUENZA VIRUS VACCINE
     Indication: Prophylaxis
     Dosage: UNK
     Dates: start: 20181128, end: 20181128
  16. INFLUENZA VIRUS VACCINE [Concomitant]
     Active Substance: INFLUENZA VIRUS VACCINE
     Dosage: UNK
     Dates: start: 20191106, end: 20191106
  17. INFLUENZA VIRUS VACCINE [Concomitant]
     Active Substance: INFLUENZA VIRUS VACCINE
     Dosage: UNK
     Dates: start: 20201111, end: 20201111
  18. LOXOPROFEN SODIUM DIHYDRATE [Concomitant]
     Active Substance: LOXOPROFEN SODIUM DIHYDRATE
     Indication: Pain prophylaxis
     Dosage: UNK
     Dates: start: 20180919, end: 20190128
  19. LOXOPROFEN SODIUM DIHYDRATE [Concomitant]
     Active Substance: LOXOPROFEN SODIUM DIHYDRATE
     Dosage: UNK
     Dates: start: 20191204, end: 20210309
  20. REBAMIPIDE [Concomitant]
     Active Substance: REBAMIPIDE
     Indication: Pain prophylaxis
     Dosage: UNK
     Dates: start: 20181203, end: 20181207
  21. REBAMIPIDE [Concomitant]
     Active Substance: REBAMIPIDE
     Dosage: UNK
     Dates: start: 20201028, end: 20210309
  22. CEFAZOLIN SODIUM INJECTION [Concomitant]
     Indication: Infection prophylaxis
     Dosage: UNK
     Dates: start: 20181203, end: 20181203
  23. CAMPHOR\MENTHOL\METHYL SALICYLATE [Concomitant]
     Active Substance: CAMPHOR\MENTHOL\METHYL SALICYLATE
     Indication: Pain prophylaxis
     Dosage: UNK
     Dates: start: 20180919, end: 20190128
  24. CAMPHOR\MENTHOL\METHYL SALICYLATE [Concomitant]
     Active Substance: CAMPHOR\MENTHOL\METHYL SALICYLATE
     Dosage: UNK
     Dates: start: 20191225, end: 20200201
  25. CAMPHOR\MENTHOL\METHYL SALICYLATE [Concomitant]
     Active Substance: CAMPHOR\MENTHOL\METHYL SALICYLATE
     Dosage: UNK
     Dates: start: 20201007
  26. BIKTARVY [Concomitant]
     Active Substance: BICTEGRAVIR SODIUM\EMTRICITABINE\TENOFOVIR ALAFENAMIDE FUMARATE
     Indication: HIV infection
     Dosage: 1 DF, 1D
     Dates: start: 20190717
  27. NEXIUM [Concomitant]
     Active Substance: ESOMEPRAZOLE MAGNESIUM
     Indication: Prophylaxis
     Dosage: UNK
     Dates: start: 20190626, end: 20191009
  28. NEXIUM [Concomitant]
     Active Substance: ESOMEPRAZOLE MAGNESIUM
     Dosage: UNK
     Dates: start: 20210210, end: 20210309
  29. LYRICA OD TABLETS [Concomitant]
     Indication: Prophylaxis
     Dosage: UNK
     Dates: start: 20200401, end: 20200830
  30. LOQOA TAPE (ESFLURBIPROFEN + MINT OIL) [Concomitant]
     Indication: Prophylaxis
     Dosage: UNK
     Dates: start: 20200710, end: 20201006
  31. PRALIA SUBCUTANEOUS INJECTION SYRINGE [Concomitant]
     Indication: Prophylaxis
     Dosage: UNK
     Dates: start: 20201111
  32. ZOLPIDEM TARTRATE OD TABLET [Concomitant]
     Indication: Prophylaxis
     Dosage: UNK
     Dates: start: 20201202, end: 202104
  33. KETOCONAZOLE [Concomitant]
     Active Substance: KETOCONAZOLE
     Dosage: UNK
     Dates: start: 20210210
  34. FLUORESCITE [Concomitant]
     Active Substance: FLUORESCEIN SODIUM
     Dosage: UNK
     Dates: start: 20200730, end: 20200730
  35. OPHTHAGREEN [Concomitant]
     Dosage: UNK
     Dates: start: 20200730, end: 20200730

REACTIONS (9)
  - Oropharyngeal candidiasis [Recovered/Resolved]
  - Oesophageal candidiasis [Recovered/Resolved]
  - Deafness traumatic [Not Recovered/Not Resolved]
  - Mycobacterium avium complex infection [Recovering/Resolving]
  - Osteomyelitis [Recovered/Resolved]
  - Pain in extremity [Recovered/Resolved]
  - Pancytopenia [Recovered/Resolved]
  - Seasonal allergy [Not Recovered/Not Resolved]
  - Osteonecrosis [Recovering/Resolving]

NARRATIVE: CASE EVENT DATE: 20151216
